FAERS Safety Report 6596492-2 (Version None)
Quarter: 2010Q1

REPORT INFORMATION
  Report Type: 
  Country: None (occurrence: None)
  Receive Date: 20100222
  Receipt Date: 20100222
  Transmission Date: 20100710
  Serious: Yes (Hospitalization)
  Sender: FDA-Public Use
  Company Number: None

PATIENT
  Age: 62 Year
  Sex: Male
  Weight: 132.6 kg

DRUGS (1)
  1. PRAZOSIN [Suspect]
     Indication: POST-TRAUMATIC STRESS DISORDER
     Dosage: 5 MG EVERY DAY PO
     Route: 048
     Dates: start: 20091109, end: 20091109

REACTIONS (6)
  - FALL [None]
  - HEAD INJURY [None]
  - HYPOTENSION [None]
  - LOSS OF CONSCIOUSNESS [None]
  - SYNCOPE [None]
  - UNEVALUABLE EVENT [None]
